FAERS Safety Report 9772696 (Version 1)
Quarter: 2013Q4

REPORT INFORMATION
  Report Type: Spontaneous
  Country: AU (occurrence: AU)
  Receive Date: 20131219
  Receipt Date: 20131219
  Transmission Date: 20140711
  Serious: Yes (Life-Threatening, Hospitalization, Other)
  Sender: FDA-Public Use
  Company Number: AU-WATSON-2013-22657

PATIENT
  Age: 19 Year
  Sex: Female

DRUGS (2)
  1. SULFASALAZINE (WATSON LABORATORIES) [Suspect]
     Indication: RHEUMATOID ARTHRITIS
     Dosage: UNK
     Route: 065
  2. A/H1N1 INFLUENZA PANDEMIC VACCINE [Suspect]
     Indication: PRODUCT USED FOR UNKNOWN INDICATION
     Dosage: UNK
     Route: 065

REACTIONS (7)
  - Drug reaction with eosinophilia and systemic symptoms [Unknown]
  - Staphylococcal sepsis [Unknown]
  - Disseminated intravascular coagulation [Unknown]
  - Thrombosis [Unknown]
  - Warm type haemolytic anaemia [Unknown]
  - Pneumonia [Unknown]
  - Human herpesvirus 6 infection [Unknown]
